FAERS Safety Report 21758668 (Version 3)
Quarter: 2024Q1

REPORT INFORMATION
  Report Type: Spontaneous
  Country: ES (occurrence: ES)
  Receive Date: 20221221
  Receipt Date: 20240315
  Transmission Date: 20240409
  Serious: Yes (Hospitalization)
  Sender: FDA-Public Use
  Company Number: None

PATIENT
  Age: 84 Year
  Sex: Female

DRUGS (8)
  1. LOSARTAN [Suspect]
     Active Substance: LOSARTAN
     Indication: Cardiac failure
     Dosage: 100.0 MG C/24 H,LOSARTAN (7157A)
     Route: 048
     Dates: start: 20220613, end: 20220614
  2. NEBIVOLOL HYDROCHLORIDE [Concomitant]
     Active Substance: NEBIVOLOL HYDROCHLORIDE
     Indication: Essential hypertension
     Dosage: 5.0 MG DE, 28 TABLETS
     Route: 048
     Dates: start: 20131205
  3. FENTANYL [Concomitant]
     Active Substance: FENTANYL\FENTANYL CITRATE
     Indication: Arthralgia
     Dosage: 1.0 PARCHE C/72 HORAS, 50 MICROGRAMS/H TRANSDERMAL PATCHES, 5 PATCHES
     Route: 065
     Dates: start: 20211109
  4. PREGABALIN NORMON [Concomitant]
     Indication: Sciatica
     Dosage: 75.0 MG C/12 H, EFG, 56 CAPSULES (ALUMINUM/PVC-PVDC BLISTER 60)
     Route: 048
     Dates: start: 20160520
  5. PARACETAMOL NORMON [Concomitant]
     Indication: Spinal osteoarthritis
     Dosage: 650.0 MG DECOCE, 40 TABLETS
     Route: 048
     Dates: start: 20180216
  6. OMEPRAZOLE [Concomitant]
     Active Substance: OMEPRAZOLE
     Indication: Product used for unknown indication
     Dosage: 20.0 MG A-DECE,  RATIO , 56 CAPSULES
     Route: 048
     Dates: start: 20110711
  7. FUROSEMIDE [Concomitant]
     Active Substance: FUROSEMIDE
     Indication: Cardiac failure
     Dosage: 40.0 MG A-DE
     Route: 048
     Dates: start: 20220614
  8. LIORESAL [Concomitant]
     Active Substance: BACLOFEN
     Indication: Sciatica
     Dosage: 10.0 MG DECOCE 30 TABLETS
     Route: 048
     Dates: start: 20180615

REACTIONS (2)
  - Hypotension [Recovered/Resolved]
  - Acute kidney injury [Recovered/Resolved]

NARRATIVE: CASE EVENT DATE: 20220614
